FAERS Safety Report 6179101-6 (Version None)
Quarter: 2009Q2

REPORT INFORMATION
  Report Type: 
  Country: None (occurrence: None)
  Receive Date: 20090430
  Receipt Date: 20090416
  Transmission Date: 20091009
  Serious: Yes (Death)
  Sender: FDA-Public Use
  Company Number: 2009S1006713

PATIENT
  Sex: Female

DRUGS (2)
  1. HUMIRA [Suspect]
     Dosage: INTRAMUSCULAR
     Route: 030
  2. METHOTREXATE [Suspect]

REACTIONS (1)
  - LUNG DISORDER [None]
